FAERS Safety Report 24364971 (Version 1)
Quarter: 2024Q3

REPORT INFORMATION
  Report Type: Spontaneous
  Country: BG (occurrence: BG)
  Receive Date: 20240926
  Receipt Date: 20240926
  Transmission Date: 20241016
  Serious: Yes (Other)
  Sender: TWI PHARMACEUTICALS
  Company Number: BG-TWI PHARMACEUTICAL, INC-20240900127

PATIENT
  Age: 87 Year
  Sex: Female

DRUGS (7)
  1. PROPAFENONE HYDROCHLORIDE [Interacting]
     Active Substance: PROPAFENONE HYDROCHLORIDE
     Indication: Hypertension
     Dosage: 150 MG, QD (AS NEEDED0
     Route: 065
  2. PROPAFENONE HYDROCHLORIDE [Interacting]
     Active Substance: PROPAFENONE HYDROCHLORIDE
     Dosage: 150 MG, BID
     Route: 065
  3. LISINOPRIL AND HYDROCHLOROTHIAZIDE [Suspect]
     Active Substance: HYDROCHLOROTHIAZIDE\LISINOPRIL
     Indication: Hypertension
     Dosage: 20MG/12.5MG, QD
     Route: 065
  4. LISINOPRIL AND HYDROCHLOROTHIAZIDE [Suspect]
     Active Substance: HYDROCHLOROTHIAZIDE\LISINOPRIL
     Dosage: 20MG/12.5MG HALF TABLET, QD
     Route: 065
  5. BISOPROLOL [Suspect]
     Active Substance: BISOPROLOL\BISOPROLOL FUMARATE
     Indication: Hypertension
     Dosage: 5 MG, QD
     Route: 065
  6. CARBAMAZEPINE [Concomitant]
     Active Substance: CARBAMAZEPINE
     Indication: Trigeminal neuralgia
     Dosage: 200 MG, PRN
     Route: 065
  7. CYANOCOBALAMIN [Concomitant]
     Active Substance: CYANOCOBALAMIN
     Indication: Trigeminal neuralgia
     Dosage: UNK, PRN
     Route: 065

REACTIONS (4)
  - Basal cell carcinoma [Unknown]
  - Squamous cell carcinoma [Unknown]
  - Keratoacanthoma [Unknown]
  - Drug interaction [Unknown]
